FAERS Safety Report 24122255 (Version 1)
Quarter: 2024Q3

REPORT INFORMATION
  Report Type: Report from Study
  Country: US (occurrence: US)
  Receive Date: 20240722
  Receipt Date: 20240722
  Transmission Date: 20241017
  Serious: Yes (Hospitalization, Other)
  Sender: ABBVIE
  Company Number: US-ABBVIE-5845153

PATIENT
  Age: 49 Year
  Sex: Female

DRUGS (1)
  1. SKYRIZI [Suspect]
     Active Substance: RISANKIZUMAB-RZAA
     Indication: Product used for unknown indication
     Route: 058

REACTIONS (5)
  - Nephrectomy [Unknown]
  - Diverticulitis intestinal perforated [Unknown]
  - Intestinal resection [Unknown]
  - Intestinal perforation [Unknown]
  - Pain [Unknown]

NARRATIVE: CASE EVENT DATE: 20240301
